FAERS Safety Report 5793264-3 (Version None)
Quarter: 2008Q2

REPORT INFORMATION
  Report Type: 
  Country: None (occurrence: None)
  Receive Date: 20080626
  Receipt Date: 20080626
  Transmission Date: 20081010
  Serious: Yes (Hospitalization)
  Sender: FDA-Public Use
  Company Number: None

PATIENT
  Age: 26 Year
  Sex: Female
  Weight: 57.1532 kg

DRUGS (1)
  1. MIRENA [Suspect]
     Indication: CONTRACEPTION
     Dosage: ONCE EVERY 5 YEARS VAG
     Route: 067
     Dates: start: 20080623

REACTIONS (5)
  - BACK PAIN [None]
  - MUSCLE SPASMS [None]
  - POST PROCEDURAL COMPLICATION [None]
  - SYNCOPE [None]
  - VOMITING [None]
